FAERS Safety Report 4962673-4 (Version None)
Quarter: 2006Q1

REPORT INFORMATION
  Report Type: 
  Country: None (occurrence: None)
  Receive Date: 20060201
  Receipt Date: 20051103
  Transmission Date: 20060701
  Serious: No
  Sender: FDA-Public Use
  Company Number: 2005PV004023

PATIENT
  Age: 75 Year
  Sex: Male
  Weight: 111.5849 kg

DRUGS (9)
  1. BYETTA [Suspect]
     Indication: DIABETES MELLITUS NON-INSULIN-DEPENDENT
     Dosage: 5 MCG;BID;SC
     Route: 058
     Dates: start: 20051031
  2. METFORMIN [Concomitant]
  3. PLAVIX [Concomitant]
  4. ASPIRIN [Concomitant]
  5. CARDIZEM [Concomitant]
  6. LEXAPRO [Concomitant]
  7. ALTACE [Concomitant]
  8. VYTORIN [Concomitant]
  9. XOPENEX [Concomitant]

REACTIONS (1)
  - CONSTIPATION [None]
